FAERS Safety Report 20633488 (Version 2)
Quarter: 2022Q2

REPORT INFORMATION
  Report Type: Spontaneous
  Country: US (occurrence: US)
  Receive Date: 20220324
  Receipt Date: 20220415
  Transmission Date: 20220721
  Serious: Yes (Other)
  Sender: FDA-Public Use
  Company Number: US-DECIPHERA PHARMACEUTICALS LLC-2022US000226

PATIENT
  Sex: Female

DRUGS (6)
  1. QINLOCK [Suspect]
     Active Substance: RIPRETINIB
     Indication: Gastrointestinal stromal tumour
     Dosage: 150 MILLIGRAM, QD
     Route: 048
     Dates: start: 20210120
  2. METHADONE [Concomitant]
     Active Substance: METHADONE HYDROCHLORIDE
     Indication: Product used for unknown indication
     Dosage: UNK
  3. TIZANIDINE [Concomitant]
     Active Substance: TIZANIDINE
     Indication: Product used for unknown indication
     Dosage: UNK
  4. AMLODIPINE [Concomitant]
     Active Substance: AMLODIPINE BESYLATE
     Indication: Product used for unknown indication
     Dosage: UNK
  5. LISINOPRIL [Concomitant]
     Active Substance: LISINOPRIL
     Indication: Product used for unknown indication
     Dosage: UNK
  6. PROMETHAZINE [Concomitant]
     Active Substance: PROMETHAZINE HYDROCHLORIDE
     Indication: Product used for unknown indication
     Dosage: UNK

REACTIONS (12)
  - Cholecystectomy [Unknown]
  - Post procedural haemorrhage [Unknown]
  - Hernia [Unknown]
  - Malaise [Not Recovered/Not Resolved]
  - Hypersomnia [Not Recovered/Not Resolved]
  - Hair texture abnormal [Not Recovered/Not Resolved]
  - Diastasis recti abdominis [Unknown]
  - Procedural pain [Not Recovered/Not Resolved]
  - Anxiety [Not Recovered/Not Resolved]
  - Abdominal pain upper [Unknown]
  - Pruritus [Not Recovered/Not Resolved]
  - Vomiting [Unknown]

NARRATIVE: CASE EVENT DATE: 20220315
